FAERS Safety Report 18414463 (Version 1)
Quarter: 2020Q4

REPORT INFORMATION
  Report Type: Spontaneous
  Country: FR (occurrence: FR)
  Receive Date: 20201022
  Receipt Date: 20201022
  Transmission Date: 20210114
  Serious: Yes (Other)
  Sender: FDA-Public Use
  Company Number: FR-MYLANLABS-2020M1088457

PATIENT
  Age: 84 Year
  Sex: Female

DRUGS (3)
  1. BORTEZOMIB. [Suspect]
     Active Substance: BORTEZOMIB
     Indication: BLASTIC PLASMACYTOID DENDRITIC CELL NEOPLASIA
     Dosage: 1.3 MILLIGRAM/SQ. METER, CYCLE BORTEZOMIB -1.3 MG/M2 ON DAYS 1, 4, 8, AND 11, IN A 21-DAY CYCLES
     Route: 042
  2. LENALIDOMIDE [Suspect]
     Active Substance: LENALIDOMIDE
     Indication: BLASTIC PLASMACYTOID DENDRITIC CELL NEOPLASIA
     Dosage: 15 MILLIGRAM, CYCLE LENALIDOMIDE (15 MG ORALLY FROM DAYS 1 TO 14), IN A 21-DAY CYCLE
     Route: 048
  3. DEXAMETHASONE. [Suspect]
     Active Substance: DEXAMETHASONE
     Indication: BLASTIC PLASMACYTOID DENDRITIC CELL NEOPLASIA
     Dosage: 20 MILLIGRAM, CYCLE DEXAMETHASONE (20 MG ON DAYS 1, 4, 8, AND 11), IN A 21-DAY CYCLE
     Route: 065

REACTIONS (1)
  - Drug resistance [Unknown]
